FAERS Safety Report 26146368 (Version 1)
Quarter: 2025Q4

REPORT INFORMATION
  Report Type: Spontaneous
  Country: TR (occurrence: None)
  Receive Date: 20251211
  Receipt Date: 20251211
  Transmission Date: 20260118
  Serious: Yes (Hospitalization, Other)
  Sender: ACS DOBFAR
  Company Number: TR-ACS-20250635

PATIENT
  Age: 71 Year
  Sex: Male

DRUGS (1)
  1. CEFUROXIME [Suspect]
     Active Substance: CEFUROXIME
     Indication: Antibiotic prophylaxis
     Dosage: INTRACAMERAL CEFUROXIME PROPHYLAXIS AT THE STANDARD DOSE (1 MG/0.1 ML) ()
     Route: 031

REACTIONS (2)
  - Haemorrhagic occlusive retinal vasculitis [Recovered/Resolved with Sequelae]
  - Off label use [Unknown]
